FAERS Safety Report 10754487 (Version 8)
Quarter: 2016Q4

REPORT INFORMATION
  Report Type: Spontaneous
  Country: US (occurrence: US)
  Receive Date: 20150202
  Receipt Date: 20161207
  Transmission Date: 20170206
  Serious: Yes (Other)
  Sender: FDA-Public Use
  Company Number: US-JNJFOC-20150116012

PATIENT
  Sex: Male

DRUGS (7)
  1. REMERON [Suspect]
     Active Substance: MIRTAZAPINE
     Indication: PRODUCT USED FOR UNKNOWN INDICATION
     Route: 065
     Dates: end: 20010628
  2. HALDOL [Concomitant]
     Active Substance: HALOPERIDOL
     Indication: PRODUCT USED FOR UNKNOWN INDICATION
     Route: 065
  3. RISPERDAL CONSTA [Suspect]
     Active Substance: RISPERIDONE
     Indication: SCHIZOPHRENIA
     Dosage: 25 MG TO 50 MG
     Route: 030
     Dates: start: 1996, end: 20110901
  4. INVEGA SUSTENNA [Suspect]
     Active Substance: PALIPERIDONE PALMITATE
     Indication: SCHIZOPHRENIA
     Dosage: 234 MG/1.5 ML
     Route: 030
  5. INVEGA TRINZA [Suspect]
     Active Substance: PALIPERIDONE PALMITATE
     Indication: PRODUCT USED FOR UNKNOWN INDICATION
     Route: 030
  6. RISPERDAL [Suspect]
     Active Substance: RISPERIDONE
     Indication: SCHIZOPHRENIA
     Dosage: 1 MG TO 4 MG
     Route: 048
     Dates: start: 1996, end: 2011
  7. INVEGA SUSTENNA [Suspect]
     Active Substance: PALIPERIDONE PALMITATE
     Indication: SCHIZOPHRENIA
     Dosage: 234 MG/1.5 ML
     Route: 030
     Dates: start: 201203, end: 201406

REACTIONS (7)
  - Gynaecomastia [Not Recovered/Not Resolved]
  - Emotional disorder [Unknown]
  - Type V hyperlipidaemia [Unknown]
  - Obesity [Not Recovered/Not Resolved]
  - Breast discharge [Unknown]
  - Depression [Unknown]
  - Blood prolactin increased [Not Recovered/Not Resolved]
